FAERS Safety Report 7406503-X (Version None)
Quarter: 2011Q2

REPORT INFORMATION
  Report Type: 
  Country: None (occurrence: None)
  Receive Date: 20110411
  Receipt Date: 20110331
  Transmission Date: 20111010
  Serious: Yes (Other)
  Sender: FDA-Public Use
  Company Number: GB-BAXTER-2011BH007532

PATIENT
  Age: 19 Year
  Sex: Female
  Weight: 60 kg

DRUGS (9)
  1. CORTICOSTEROIDS [Suspect]
     Indication: PRODUCT USED FOR UNKNOWN INDICATION
     Route: 065
  2. ILOPROST [Suspect]
     Indication: PERIPHERAL ISCHAEMIA
     Route: 042
  3. HYPNOTICS AND SEDATIVES [Concomitant]
     Indication: PRODUCT USED FOR UNKNOWN INDICATION
     Route: 065
  4. CYCLOPHOSPHAMIDE [Suspect]
     Indication: PERIPHERAL ISCHAEMIA
     Route: 065
  5. ILOPROST [Suspect]
     Indication: VASCULITIS
     Route: 042
  6. ANTIBIOTICS [Concomitant]
     Indication: PRODUCT USED FOR UNKNOWN INDICATION
     Route: 065
  7. MORPHINE [Concomitant]
     Indication: PRODUCT USED FOR UNKNOWN INDICATION
     Route: 065
  8. CYCLOPHOSPHAMIDE [Suspect]
     Indication: VASCULITIS
     Route: 065
  9. IMMUNOGLOBULINS [Concomitant]
     Indication: PERIPHERAL ISCHAEMIA
     Route: 042

REACTIONS (3)
  - FLUSHING [None]
  - RASH [None]
  - HEADACHE [None]
